FAERS Safety Report 7199598-2 (Version None)
Quarter: 2010Q4

REPORT INFORMATION
  Report Type: 
  Country: None (occurrence: None)
  Receive Date: 20101228
  Receipt Date: 20101217
  Transmission Date: 20110411
  Serious: Yes (Hospitalization)
  Sender: FDA-Public Use
  Company Number: US-JNJFOC-20101108445

PATIENT
  Sex: Male
  Weight: 67.5 kg

DRUGS (10)
  1. REMICADE [Suspect]
     Indication: INFLAMMATORY BOWEL DISEASE
     Route: 042
  2. HUMIRA [Concomitant]
     Indication: INFLAMMATORY BOWEL DISEASE
  3. BUDESONIDE [Concomitant]
  4. METHOTREXATE [Concomitant]
  5. MESALAMINE [Concomitant]
  6. MONTELUKAST [Concomitant]
  7. FOLIC ACID [Concomitant]
  8. CEFTRIAXONE [Concomitant]
  9. ASMANEX TWISTHALER [Concomitant]
  10. PROBIOTICS [Concomitant]

REACTIONS (1)
  - PNEUMONIA VIRAL [None]
